FAERS Safety Report 8935223 (Version 1)
Quarter: 2012Q4

REPORT INFORMATION
  Report Type: 
  Country: CA (occurrence: CA)
  Receive Date: 20121129
  Receipt Date: 20121129
  Transmission Date: 20130627
  Serious: Yes (Hospitalization, Other)
  Sender: FDA-Public Use
  Company Number: CA-ELI_LILLY_AND_COMPANY-CA201211006538

PATIENT
  Age: 79 Year
  Sex: Female

DRUGS (11)
  1. FORTEO [Suspect]
     Indication: OSTEOPOROSIS
     Dosage: 20 ug, qd
     Route: 058
     Dates: start: 20120726, end: 20121018
  2. ASPIRIN [Concomitant]
     Dosage: 81 mg, unknown
     Route: 065
  3. SOTALOL [Concomitant]
     Dosage: 80 mg, unknown
     Route: 065
  4. FOLIC ACID [Concomitant]
     Dosage: 5 mg, unknown
     Route: 065
  5. VITAMIN B12 [Concomitant]
     Dosage: 1200 ug, unknown
     Route: 065
  6. VITAMIN D NOS [Concomitant]
     Dosage: 1000 IU, unknown
     Route: 065
  7. CALCIUM [Concomitant]
     Dosage: 500 mg, unknown
     Route: 065
  8. MULTIVITAMIN [Concomitant]
     Dosage: UNK, unknown
     Route: 065
  9. ELAVIL [Concomitant]
     Dosage: 10 mg, unknown
     Route: 065
  10. DOCUSATE SODIUM [Concomitant]
     Dosage: 200 mg, prn
     Route: 065
  11. NEURONTIN [Concomitant]
     Dosage: 300 mg, bid
     Route: 065

REACTIONS (1)
  - Intestinal obstruction [Recovered/Resolved]
